FAERS Safety Report 24971335 (Version 1)
Quarter: 2025Q1

REPORT INFORMATION
  Report Type: Other
  Country: IR (occurrence: IR)
  Receive Date: 20250214
  Receipt Date: 20250214
  Transmission Date: 20250409
  Serious: Yes (Other)
  Sender: KNIGHT THERAPEUTICS
  Company Number: IR-Knight Therapeutics (USA) Inc.-2171097

PATIENT
  Age: 4 Year
  Sex: Male

DRUGS (2)
  1. IMPAVIDO [Suspect]
     Active Substance: MILTEFOSINE
     Indication: Haemophagocytic lymphohistiocytosis
  2. Immunoglobulin [Concomitant]

REACTIONS (5)
  - Melaena [Recovered/Resolved]
  - Product use in unapproved indication [Unknown]
  - Drug ineffective [Unknown]
  - Epistaxis [Recovered/Resolved]
  - Thrombocytopenia [Recovered/Resolved]
